FAERS Safety Report 18146627 (Version 1)
Quarter: 2020Q3

REPORT INFORMATION
  Report Type: Spontaneous
  Country: US (occurrence: US)
  Receive Date: 20200813
  Receipt Date: 20200813
  Transmission Date: 20201103
  Serious: No
  Sender: FDA-Public Use
  Company Number: US-ELI_LILLY_AND_COMPANY-US202007007347

PATIENT
  Sex: Female

DRUGS (1)
  1. HUMALOG [Suspect]
     Active Substance: INSULIN LISPRO
     Indication: TYPE 2 DIABETES MELLITUS
     Dosage: UNK UNK, PRN
     Route: 065
     Dates: start: 2015

REACTIONS (7)
  - Pruritus [Unknown]
  - Anxiety [Unknown]
  - Incorrect dose administered [Unknown]
  - Pollakiuria [Unknown]
  - Blood glucose increased [Unknown]
  - Formication [Unknown]
  - Thirst [Unknown]
